FAERS Safety Report 4579797-6 (Version None)
Quarter: 2005Q1

REPORT INFORMATION
  Report Type: 
  Country: None (occurrence: None)
  Receive Date: 20050210
  Receipt Date: 20050125
  Transmission Date: 20050727
  Serious: Yes (Hospitalization)
  Sender: FDA-Public Use
  Company Number: DSA_25742_2005

PATIENT
  Age: 84 Year
  Sex: Female

DRUGS (7)
  1. TEMESTA [Suspect]
     Dosage: 1 MG Q DAY PO
     Route: 048
     Dates: end: 20040222
  2. TEMESTA [Suspect]
     Dosage: DF PO
     Route: 048
     Dates: start: 20040223
  3. ENDOTELON [Suspect]
     Dosage: 2 DF Q DAY PO
     Route: 048
  4. PLAVIX [Suspect]
     Dosage: 1 DF Q DAY PO
     Route: 048
  5. RISPERDAL [Suspect]
     Dosage: 1 MG Q DAY PO
     Route: 048
  6. SOLIAN [Suspect]
     Dosage: 1 DF Q DAY PO
     Route: 048
     Dates: end: 20040222
  7. TAREG [Suspect]
     Dosage: 1 DF Q DAY PO
     Route: 048

REACTIONS (5)
  - DISORIENTATION [None]
  - DYSKINESIA [None]
  - EXTRAPYRAMIDAL DISORDER [None]
  - FALL [None]
  - GAIT DISTURBANCE [None]
